FAERS Safety Report 22536074 (Version 2)
Quarter: 2023Q2

REPORT INFORMATION
  Report Type: Spontaneous
  Country: PT (occurrence: PT)
  Receive Date: 20230608
  Receipt Date: 20230630
  Transmission Date: 20230721
  Serious: Yes (Other)
  Sender: FDA-Public Use
  Company Number: PT-AMGEN-PRTSP2023097164

PATIENT
  Age: 61 Year
  Sex: Male

DRUGS (4)
  1. BEVACIZUMAB [Suspect]
     Active Substance: BEVACIZUMAB
     Indication: Product used for unknown indication
     Dosage: 2000 MILLIGRAM (15MG/KG (2000MG TOT)
     Route: 065
     Dates: start: 20221223
  2. ATEZOLIZUMAB [Suspect]
     Active Substance: ATEZOLIZUMAB
     Indication: Product used for unknown indication
     Dosage: 1200 MILLIGRAM
     Route: 065
     Dates: start: 20221223
  3. LANSOPRAZOLE [Concomitant]
     Active Substance: LANSOPRAZOLE
     Dosage: 30 MILLIGRAM, QD
  4. CARVEDILOL [Concomitant]
     Active Substance: CARVEDILOL
     Dosage: 12.5 MILLIGRAM, QD

REACTIONS (3)
  - Rash [Recovering/Resolving]
  - Immune-mediated dermatitis [Unknown]
  - Acquired phimosis [Recovering/Resolving]

NARRATIVE: CASE EVENT DATE: 20230321
